FAERS Safety Report 18623824 (Version 1)
Quarter: 2020Q4

REPORT INFORMATION
  Report Type: Spontaneous
  Country: US (occurrence: US)
  Receive Date: 20201216
  Receipt Date: 20201216
  Transmission Date: 20210114
  Serious: Yes (Life-Threatening, Hospitalization)
  Sender: FDA-Public Use
  Company Number: None

PATIENT
  Age: 30 Year
  Sex: Female
  Weight: 123.3 kg

DRUGS (4)
  1. BRIDION [Suspect]
     Active Substance: SUGAMMADEX
     Indication: NEUROMUSCULAR BLOCKADE REVERSAL
     Dosage: ?          OTHER FREQUENCY:ONCE;?
     Route: 040
     Dates: start: 20200730, end: 20200730
  2. FENTANYL 100 MCG [Concomitant]
     Active Substance: FENTANYL
     Dates: start: 20200730, end: 20200730
  3. ZOFRAN 4 MG IV [Concomitant]
     Dates: start: 20200730, end: 20200730
  4. ROCURONIUM 30 MG IV [Concomitant]
     Dates: start: 20200730, end: 20200730

REACTIONS (8)
  - Bradycardia [None]
  - Oxygen saturation decreased [None]
  - Respiratory failure [None]
  - Foaming at mouth [None]
  - Pulmonary oedema [None]
  - Pulse absent [None]
  - Cardio-respiratory arrest [None]
  - Cardiac failure congestive [None]

NARRATIVE: CASE EVENT DATE: 20200730
